FAERS Safety Report 5471871-5 (Version None)
Quarter: 2007Q3

REPORT INFORMATION
  Report Type: 
  Country: None (occurrence: None)
  Receive Date: 20070928
  Receipt Date: 20070713
  Transmission Date: 20080115
  Serious: No
  Sender: FDA-Public Use
  Company Number: US-BRISTOL-MYERS SQUIBB COMPANY-13846068

PATIENT
  Age: 82 Year
  Sex: Female
  Weight: 78 kg

DRUGS (18)
  1. DEFINITY [Suspect]
     Indication: STRESS ECHOCARDIOGRAM
     Route: 042
     Dates: start: 20070713, end: 20070713
  2. SODIUM CHLORIDE [Concomitant]
     Indication: STRESS ECHOCARDIOGRAM
     Route: 042
     Dates: start: 20070713, end: 20070713
  3. ATENOLOL [Concomitant]
  4. ACIPHEX [Concomitant]
  5. EFFEXOR [Concomitant]
  6. BONIVA [Concomitant]
  7. COZAAR [Concomitant]
  8. TYLENOL (CAPLET) [Concomitant]
  9. VITAMIN E [Concomitant]
  10. CALCIUM CARBONATE [Concomitant]
  11. VITAMIN D [Concomitant]
  12. OMEGA 3 FATTY ACID [Concomitant]
  13. GLUCOSAMINE [Concomitant]
  14. VITAMIN B [Concomitant]
  15. ASCORBIC ACID [Concomitant]
  16. COLACE [Concomitant]
  17. ASPIRIN [Concomitant]
  18. BETACAROTENE [Concomitant]

REACTIONS (2)
  - MUSCLE SPASMS [None]
  - PRURITUS [None]
